FAERS Safety Report 7997458-8 (Version None)
Quarter: 2011Q4

REPORT INFORMATION
  Report Type: 
  Country: None (occurrence: None)
  Receive Date: 20111221
  Receipt Date: 20111212
  Transmission Date: 20120403
  Serious: Yes (Hospitalization)
  Sender: FDA-Public Use
  Company Number: JP-PFIZER INC-2010156323

PATIENT
  Age: 74 Year
  Sex: Male

DRUGS (4)
  1. ZITHROMAX [Suspect]
     Dosage: 250 MG, DAILY
  2. RIFABUTIN [Concomitant]
     Dosage: 300 MG, DAILY
  3. LEVOFLOXACIN [Concomitant]
     Dosage: 400 MG, DAILY
  4. ETHAMBUTOL [Concomitant]

REACTIONS (4)
  - GASTROINTESTINAL DISORDER [None]
  - DECREASED APPETITE [None]
  - WEIGHT DECREASED [None]
  - CHEST X-RAY ABNORMAL [None]
